FAERS Safety Report 6190074-2 (Version None)
Quarter: 2009Q2

REPORT INFORMATION
  Report Type: 
  Country: None (occurrence: None)
  Receive Date: 20090513
  Receipt Date: 20090513
  Transmission Date: 20091009
  Serious: Yes (Life-Threatening, Other)
  Sender: FDA-Public Use
  Company Number: None

PATIENT
  Sex: Female
  Weight: 78.9259 kg

DRUGS (2)
  1. LEVAQUIN [Suspect]
     Indication: BRONCHITIS
     Dosage: 1 TABLET DAILY BY MOUTH
     Route: 048
     Dates: start: 20090222, end: 20090307
  2. LEVAQUIN [Suspect]
     Indication: SINUSITIS
     Dosage: 1 TABLET DAILY BY MOUTH
     Route: 048
     Dates: start: 20090222, end: 20090307

REACTIONS (2)
  - CHEST PAIN [None]
  - STEVENS-JOHNSON SYNDROME [None]
